FAERS Safety Report 15888335 (Version 1)
Quarter: 2019Q1

REPORT INFORMATION
  Report Type: Spontaneous
  Country: US (occurrence: US)
  Receive Date: 20190108
  Receipt Date: 20190108
  Transmission Date: 20190417
  Serious: Yes (Life-Threatening, Hospitalization)
  Sender: FDA-Public Use
  Company Number: None

PATIENT
  Age: 73 Year
  Sex: Male
  Weight: 83.01 kg

DRUGS (11)
  1. FISH OIL [Concomitant]
     Active Substance: FISH OIL
  2. VIT D-3 [Concomitant]
  3. NOVOLIN N+R INSULIN [Concomitant]
  4. AQUAPHOR HEALING [Suspect]
     Active Substance: PETROLATUM
     Indication: INFECTION PROPHYLAXIS
     Route: 061
     Dates: start: 20180420, end: 20180420
  5. LEVOTHYROXINE. [Concomitant]
     Active Substance: LEVOTHYROXINE
  6. GABAPENTIN. [Concomitant]
     Active Substance: GABAPENTIN
  7. ASPIRINE [Concomitant]
     Active Substance: ASPIRIN
  8. METFORMIN [Concomitant]
     Active Substance: METFORMIN HYDROCHLORIDE
  9. ATORVASTATIN [Concomitant]
     Active Substance: ATORVASTATIN
  10. CYANOCOBALAMIN. [Concomitant]
     Active Substance: CYANOCOBALAMIN
  11. COQ10 [Concomitant]
     Active Substance: UBIDECARENONE

REACTIONS (6)
  - Swelling face [None]
  - Application site swelling [None]
  - Swollen tongue [None]
  - Product label issue [None]
  - Lip swelling [None]
  - Pharyngeal oedema [None]

NARRATIVE: CASE EVENT DATE: 20180420
